FAERS Safety Report 21434806 (Version 6)
Quarter: 2024Q1

REPORT INFORMATION
  Report Type: Spontaneous
  Country: GB (occurrence: GB)
  Receive Date: 20221010
  Receipt Date: 20240103
  Transmission Date: 20240410
  Serious: Yes (Other)
  Sender: FDA-Public Use
  Company Number: GB-MYLANLABS-2022M1112220

PATIENT
  Age: 39 Year
  Sex: Male

DRUGS (1)
  1. CLOZARIL [Suspect]
     Active Substance: CLOZAPINE
     Indication: Product used for unknown indication
     Dosage: UNK
     Route: 048
     Dates: start: 20070509

REACTIONS (3)
  - Thrombocytopenia [Unknown]
  - Differential white blood cell count abnormal [Recovering/Resolving]
  - Leukocytosis [Unknown]

NARRATIVE: CASE EVENT DATE: 20221006
